FAERS Safety Report 9750944 (Version 1)
Quarter: 2013Q4

REPORT INFORMATION
  Report Type: Spontaneous
  Country: US (occurrence: US)
  Receive Date: 20131212
  Receipt Date: 20131212
  Transmission Date: 20140711
  Serious: No
  Sender: FDA-Public Use
  Company Number: US-TEVA-402382USA

PATIENT
  Age: 26 Year
  Sex: Female
  Weight: 71.28 kg

DRUGS (3)
  1. PARAGARD 380A [Suspect]
     Dates: start: 20130402, end: 20130430
  2. METOPROLOL SUCCINATE [Concomitant]
     Indication: HYPERTENSION
     Dosage: 20 MILLIGRAM DAILY; QD
     Route: 048
  3. BUSPIRONE HYDROCHLORIDE [Concomitant]
     Dosage: QD
     Route: 048

REACTIONS (1)
  - Device expulsion [Recovered/Resolved]
